FAERS Safety Report 24221292 (Version 2)
Quarter: 2024Q3

REPORT INFORMATION
  Report Type: Spontaneous
  Country: DK (occurrence: DK)
  Receive Date: 20240819
  Receipt Date: 20240823
  Transmission Date: 20241017
  Serious: Yes (Disabling, Other)
  Sender: NOVO NORDISK
  Company Number: None

PATIENT
  Age: 56 Year
  Sex: Male
  Weight: 103 kg

DRUGS (3)
  1. Zolt [Concomitant]
     Indication: Hiatus hernia
     Dosage: 30 MG, QD
     Dates: start: 20240215
  2. Zolt [Concomitant]
     Indication: Gastrooesophageal reflux disease
  3. WEGOVY [Suspect]
     Active Substance: SEMAGLUTIDE
     Indication: Overweight
     Dosage: 1 MG, QW
     Dates: start: 20240310, end: 20240730

REACTIONS (2)
  - Optic ischaemic neuropathy [Unknown]
  - Visual impairment [Not Recovered/Not Resolved]

NARRATIVE: CASE EVENT DATE: 20240701
